FAERS Safety Report 6743541-4 (Version None)
Quarter: 2010Q2

REPORT INFORMATION
  Report Type: 
  Country: None (occurrence: None)
  Receive Date: 20100527
  Receipt Date: 20100518
  Transmission Date: 20101027
  Serious: Yes (Life-Threatening, Hospitalization, Other)
  Sender: FDA-Public Use
  Company Number: FR-ROCHE-657429

PATIENT
  Sex: Male
  Weight: 63 kg

DRUGS (12)
  1. PEGASYS [Suspect]
     Indication: HEPATITIS C
     Dosage: FORM: INJECTABLE SOLUTION
     Route: 058
     Dates: start: 20090624
  2. PEGASYS [Suspect]
     Dosage: REDUCED DOSE
     Route: 058
     Dates: end: 20090801
  3. COPEGUS [Suspect]
     Indication: HEPATITIS C
     Route: 048
     Dates: start: 20090624
  4. COPEGUS [Suspect]
     Dosage: DOSE REDUCED
     Route: 048
     Dates: end: 20090801
  5. NEORECORMON [Concomitant]
     Indication: RENAL FAILURE
  6. NEORECORMON [Concomitant]
     Dosage: INCREASE DOSE
  7. LOXEN [Concomitant]
     Dosage: DRUG: LOXEN LP
     Dates: start: 20080101
  8. TAHOR [Concomitant]
  9. CALCIUM CARBONATE [Concomitant]
     Dosage: DOSE: 1 SACHET AT LUNCHTIME
     Route: 048
  10. EUPRESSYL [Concomitant]
     Route: 048
  11. RAMIPRIL [Concomitant]
     Route: 048
  12. CARDENSIEL [Concomitant]

REACTIONS (11)
  - ANAEMIA [None]
  - CARDIAC FAILURE [None]
  - COMA [None]
  - CONFUSIONAL STATE [None]
  - CONVULSION [None]
  - ECZEMA [None]
  - FALL [None]
  - LUNG NEOPLASM [None]
  - PLEURAL EFFUSION [None]
  - TACHYCARDIA [None]
  - TUBERCULOUS PLEURISY [None]
